FAERS Safety Report 18430144 (Version 1)
Quarter: 2020Q4

REPORT INFORMATION
  Report Type: Spontaneous
  Country: US (occurrence: US)
  Receive Date: 20201026
  Receipt Date: 20201026
  Transmission Date: 20210114
  Serious: No
  Sender: FDA-Public Use
  Company Number: US-ASTRAZENECA-2020SF37147

PATIENT
  Age: 55 Year
  Sex: Male

DRUGS (1)
  1. ZOMIG [Suspect]
     Active Substance: ZOLMITRIPTAN
     Dosage: USE 1 SPRAY IN 1 NOSTRIL AT ONSET OF MIGRAINE. MAY REPEAT IN 2 HOURS IF NEEDED. (DO NOT EXCEED 10...
     Route: 045

REACTIONS (4)
  - Dizziness [Unknown]
  - Urticaria [Unknown]
  - Pruritus [Unknown]
  - Migraine [Not Recovered/Not Resolved]
